FAERS Safety Report 9401585 (Version 2)
Quarter: 2014Q3

REPORT INFORMATION
  Report Type: Spontaneous
  Country: US (occurrence: US)
  Receive Date: 20130716
  Receipt Date: 20140808
  Transmission Date: 20150326
  Serious: Yes (Other)
  Sender: FDA-Public Use
  Company Number: US-BRISTOL-MYERS SQUIBB COMPANY-19088350

PATIENT
  Age: 54 Year
  Sex: Female
  Weight: 69.39 kg

DRUGS (13)
  1. ALLOPURINOL. [Concomitant]
     Active Substance: ALLOPURINOL
  2. DIGOXIN. [Concomitant]
     Active Substance: DIGOXIN
  3. LASIX [Concomitant]
     Active Substance: FUROSEMIDE
  4. ACETYLSALICYLIC ACID [Concomitant]
     Active Substance: ASPIRIN
  5. LIPITOR [Concomitant]
     Active Substance: ATORVASTATIN CALCIUM
  6. PRILOSEC [Concomitant]
     Active Substance: OMEPRAZOLE MAGNESIUM
  7. FERROUS SULFATE [Concomitant]
     Active Substance: FERROUS SULFATE\FERROUS SULFATE, DRIED
  8. CARVEDILOL. [Concomitant]
     Active Substance: CARVEDILOL
  9. COLACE [Concomitant]
     Active Substance: DOCUSATE SODIUM
  10. PLAVIX [Suspect]
     Active Substance: CLOPIDOGREL BISULFATE
  11. POTASSIUM [Concomitant]
     Active Substance: POTASSIUM
  12. SPRYCEL [Suspect]
     Active Substance: DASATINIB
     Indication: CHRONIC MYELOID LEUKAEMIA
     Route: 048
     Dates: start: 20130430
  13. ELIQUIS [Suspect]
     Active Substance: APIXABAN

REACTIONS (7)
  - Melaena [Not Recovered/Not Resolved]
  - Fatigue [Not Recovered/Not Resolved]
  - Rash pruritic [Not Recovered/Not Resolved]
  - Anaemia [Not Recovered/Not Resolved]
  - Weight decreased [Not Recovered/Not Resolved]
  - Alopecia [Not Recovered/Not Resolved]
  - Diarrhoea [Not Recovered/Not Resolved]

NARRATIVE: CASE EVENT DATE: 20130430
